FAERS Safety Report 4894923-7 (Version None)
Quarter: 2006Q1

REPORT INFORMATION
  Report Type: 
  Country: None (occurrence: None)
  Receive Date: 20060130
  Receipt Date: 20050315
  Transmission Date: 20060701
  Serious: No
  Sender: FDA-Public Use
  Company Number: US-BRISTOL-MYERS SQUIBB COMPANY-12898797

PATIENT
  Sex: Female

DRUGS (2)
  1. METFORMIN HCL [Suspect]
  2. AVANDIA [Suspect]

REACTIONS (1)
  - SWELLING [None]
